FAERS Safety Report 12500379 (Version 2)
Quarter: 2016Q3

REPORT INFORMATION
  Report Type: Spontaneous
  Country: US (occurrence: US)
  Receive Date: 20160627
  Receipt Date: 20160819
  Transmission Date: 20161109
  Serious: No
  Sender: FDA-Public Use
  Company Number: US-PFIZER INC-2016292278

PATIENT
  Age: 48 Year
  Sex: Male

DRUGS (11)
  1. ADDERALL [Concomitant]
     Active Substance: AMPHETAMINE ASPARTATE\AMPHETAMINE SULFATE\DEXTROAMPHETAMINE SACCHARATE\DEXTROAMPHETAMINE SULFATE
  2. METHYL B 12 [Concomitant]
  3. ASA [Concomitant]
     Active Substance: ASPIRIN
  4. MELATONIN [Concomitant]
     Active Substance: MELATONIN
  5. CRESTOR [Concomitant]
     Active Substance: ROSUVASTATIN CALCIUM
  6. GENOTROPIN [Suspect]
     Active Substance: SOMATROPIN
     Indication: GROWTH HORMONE DEFICIENCY
     Dosage: 0.4 MG, DAILY (QD)
     Route: 058
     Dates: start: 20160505
  7. COREG [Concomitant]
     Active Substance: CARVEDILOL
  8. STRIBILD [Concomitant]
     Active Substance: COBICISTAT\ELVITEGRAVIR\EMTRICITABINE\TENOFOVIR DISOPROXIL FUMARATE
  9. TESTOSTERONE. [Concomitant]
     Active Substance: TESTOSTERONE
  10. REMIDEX [Concomitant]
     Active Substance: ANASTROZOLE
  11. WELLBUTRIN [Concomitant]
     Active Substance: BUPROPION HYDROCHLORIDE

REACTIONS (3)
  - Swelling face [Unknown]
  - Abdominal distension [Recovered/Resolved]
  - Weight increased [Unknown]

NARRATIVE: CASE EVENT DATE: 20160518
